FAERS Safety Report 15240905 (Version 1)
Quarter: 2018Q3

REPORT INFORMATION
  Report Type: Spontaneous
  Country: US (occurrence: US)
  Receive Date: 20180711
  Receipt Date: 20180711
  Transmission Date: 20181010
  Serious: Yes (Life-Threatening)
  Sender: FDA-Public Use
  Company Number: None

PATIENT
  Age: 49 Year
  Sex: Female

DRUGS (3)
  1. ETHINYL ESTRADIOL/LEVONORGESTEROL [Concomitant]
  2. TOLTERODONE LA [Concomitant]
  3. LISINOPRIL. [Suspect]
     Active Substance: LISINOPRIL
     Indication: HYPERTENSION
     Route: 048
     Dates: start: 20170804, end: 20170813

REACTIONS (2)
  - Swelling face [None]
  - Paraesthesia [None]

NARRATIVE: CASE EVENT DATE: 20170813
